FAERS Safety Report 6647642-0 (Version None)
Quarter: 2010Q1

REPORT INFORMATION
  Report Type: 
  Country: None (occurrence: None)
  Receive Date: 20100323
  Receipt Date: 20100323
  Transmission Date: 20100710
  Serious: Yes (Hospitalization)
  Sender: FDA-Public Use
  Company Number: None

PATIENT
  Age: 52 Year
  Sex: Female
  Weight: 47.6277 kg

DRUGS (8)
  1. AVASTIN [Suspect]
     Indication: NON-SMALL CELL LUNG CANCER
     Dosage: 15 MG/KG IV-D14 + Q2LD
     Route: 042
     Dates: start: 20100113, end: 20100127
  2. ABRAXANE [Suspect]
     Indication: NON-SMALL CELL LUNG CANCER
     Dosage: 100MG/M2 IV D1, 8 AND 15
     Route: 042
     Dates: start: 20100127, end: 20100127
  3. COMPAZINE [Concomitant]
  4. DILAUDID [Concomitant]
  5. DURAGESIC-100 [Concomitant]
  6. NORVASC [Concomitant]
  7. NYSTATIN [Concomitant]
  8. ZETIA [Concomitant]

REACTIONS (6)
  - BLOOD ALKALINE PHOSPHATASE INCREASED [None]
  - DEHYDRATION [None]
  - HYPOPHAGIA [None]
  - NAUSEA [None]
  - TRANSAMINASES INCREASED [None]
  - VOMITING [None]
